FAERS Safety Report 19191389 (Version 1)
Quarter: 2021Q2

REPORT INFORMATION
  Report Type: Spontaneous
  Country: US (occurrence: US)
  Receive Date: 20210429
  Receipt Date: 20210429
  Transmission Date: 20210717
  Serious: No
  Sender: FDA-Public Use
  Company Number: US-AKCEA THERAPEUTICS, INC.-2021IS001079

PATIENT
  Age: 37 Year
  Sex: Female

DRUGS (2)
  1. TEGSEDI [Suspect]
     Active Substance: INOTERSEN SODIUM
     Indication: HEREDITARY NEUROPATHIC AMYLOIDOSIS
     Route: 058
  2. ISSD (INTEGRATED SYRINGE SAFETY DEVICE) [Suspect]
     Active Substance: DEVICE

REACTIONS (7)
  - Urinary occult blood positive [Unknown]
  - Urinary sediment present [Unknown]
  - Bacterial test positive [Unknown]
  - Platelet count decreased [Unknown]
  - Protein urine present [Unknown]
  - Urine abnormality [Unknown]
  - Urine leukocyte esterase positive [Unknown]
